FAERS Safety Report 4315968-1 (Version None)
Quarter: 2004Q1

REPORT INFORMATION
  Report Type: 
  Country: None (occurrence: None)
  Receive Date: 20040310
  Receipt Date: 20040225
  Transmission Date: 20041129
  Serious: No
  Sender: FDA-Public Use
  Company Number: 2004GB00503

PATIENT
  Sex: Female

DRUGS (1)
  1. PULMICORT [Suspect]
     Dates: start: 19980101

REACTIONS (3)
  - DYSPNOEA [None]
  - FEELING ABNORMAL [None]
  - HEART RATE DECREASED [None]
